FAERS Safety Report 6812127-5 (Version None)
Quarter: 2010Q3

REPORT INFORMATION
  Report Type: 
  Country: None (occurrence: None)
  Receive Date: 20100701
  Receipt Date: 20091021
  Transmission Date: 20110219
  Serious: Yes (Other)
  Sender: FDA-Public Use
  Company Number: US-ABBOTT-09P-163-0604497-00

PATIENT
  Sex: Female

DRUGS (12)
  1. NORVIR [Suspect]
     Indication: HIV INFECTION
  2. NICOTROL [Suspect]
     Indication: EX-TOBACCO USER
     Route: 045
     Dates: start: 20080101
  3. ZERIT [Suspect]
     Indication: HIV INFECTION
  4. INVIRASE [Suspect]
     Indication: HIV INFECTION
  5. VALTREX [Concomitant]
     Indication: PRODUCT USED FOR UNKNOWN INDICATION
  6. PREMARIN [Concomitant]
     Indication: PRODUCT USED FOR UNKNOWN INDICATION
  7. VITAMIN A [Concomitant]
     Indication: PRODUCT USED FOR UNKNOWN INDICATION
  8. VITAMIN B [Concomitant]
     Indication: PRODUCT USED FOR UNKNOWN INDICATION
  9. VITAMIN C [Concomitant]
     Indication: PRODUCT USED FOR UNKNOWN INDICATION
  10. VITAMIN D [Concomitant]
     Indication: PRODUCT USED FOR UNKNOWN INDICATION
  11. CALCIUM D [Concomitant]
     Indication: PRODUCT USED FOR UNKNOWN INDICATION
  12. HYDROCHLOROTHIAZIDE [Concomitant]
     Indication: HYPERTENSION

REACTIONS (5)
  - DEPRESSION [None]
  - IRRITABILITY [None]
  - STRESS [None]
  - WEIGHT FLUCTUATION [None]
  - WEIGHT INCREASED [None]
